FAERS Safety Report 25367330 (Version 5)
Quarter: 2025Q4

REPORT INFORMATION
  Report Type: Report from Study
  Country: GB (occurrence: None)
  Receive Date: 20250528
  Receipt Date: 20251108
  Transmission Date: 20260118
  Serious: Yes (Other)
  Sender: UCB
  Company Number: GB-UCBSA-2025031185

PATIENT
  Age: 47 Year
  Weight: 91.4 kg

DRUGS (2)
  1. BIMEKIZUMAB [Suspect]
     Active Substance: BIMEKIZUMAB
     Indication: Psoriasis
     Dosage: 320 MILLIGRAM, EV 4 WEEKS
  2. BIMEKIZUMAB [Suspect]
     Active Substance: BIMEKIZUMAB
     Dosage: 320 MILLIGRAM, EV 8 WEEKS

REACTIONS (4)
  - Lower respiratory tract infection [Not Recovered/Not Resolved]
  - Wound secretion [Recovered/Resolved]
  - Wound closure [Recovered/Resolved]
  - Beta haemolytic streptococcal infection [Not Recovered/Not Resolved]
